FAERS Safety Report 4969216-X (Version None)
Quarter: 2006Q2

REPORT INFORMATION
  Report Type: 
  Country: None (occurrence: None)
  Receive Date: 20060405
  Receipt Date: 20060324
  Transmission Date: 20061013
  Serious: Yes (Death, Hospitalization, Other)
  Sender: FDA-Public Use
  Company Number: MEDI-0004212

PATIENT
  Age: 76 Year
  Sex: Male
  Weight: 75.7507 kg

DRUGS (14)
  1. ETHYOL [Suspect]
     Indication: CHEMOTHERAPY
     Dosage: 5 IN 1 WK, SUBCUTANEOUS
     Route: 058
     Dates: start: 20060105, end: 20060127
  2. ETHYOL [Suspect]
     Indication: RADIOTHERAPY
     Dosage: 5 IN 1 WK, SUBCUTANEOUS
     Route: 058
     Dates: start: 20060105, end: 20060127
  3. RADIATION THERAPY [Concomitant]
  4. TAXOL [Concomitant]
  5. CARBOPLATIN [Concomitant]
  6. TOPRAL (SULTOPRIDE) [Concomitant]
  7. AVAPRO [Concomitant]
  8. LIPITOR (ATORVASTATIN) [Concomitant]
  9. ASPIRIN [Concomitant]
  10. AMARYL [Concomitant]
  11. COUMADIN [Concomitant]
  12. IMDUR [Concomitant]
  13. VASOTEC [Concomitant]
  14. DIGOXIN [Concomitant]

REACTIONS (19)
  - ANOREXIA [None]
  - ASTHENIA [None]
  - BLOOD PRESSURE SYSTOLIC DECREASED [None]
  - BLOOD PRESSURE SYSTOLIC INCREASED [None]
  - BUNDLE BRANCH BLOCK LEFT [None]
  - CACHEXIA [None]
  - CARDIAC FAILURE CONGESTIVE [None]
  - CARDIOMYOPATHY [None]
  - DYSPNOEA [None]
  - FATIGUE [None]
  - LUNG INFECTION PSEUDOMONAL [None]
  - MALAISE [None]
  - MYOCARDIAL INFARCTION [None]
  - PROCEDURAL COMPLICATION [None]
  - PULMONARY EMBOLISM [None]
  - PULMONARY OEDEMA [None]
  - RESPIRATORY FAILURE [None]
  - SINUS TACHYCARDIA [None]
  - THERAPY NON-RESPONDER [None]
